FAERS Safety Report 7164638-3 (Version None)
Quarter: 2010Q4

REPORT INFORMATION
  Report Type: 
  Country: None (occurrence: None)
  Receive Date: 20101215
  Receipt Date: 20101209
  Transmission Date: 20110411
  Serious: Yes (Death)
  Sender: FDA-Public Use
  Company Number: US-CELGENEUS-163-21880-10121235

PATIENT
  Sex: Female

DRUGS (7)
  1. REVLIMID [Suspect]
     Indication: MULTIPLE MYELOMA
     Route: 048
     Dates: start: 20100801, end: 20100101
  2. SULFAMETHOXAZOLE AND TRIMETHOPRIM [Concomitant]
     Route: 065
  3. OXYCODONE [Concomitant]
     Route: 065
  4. AMITRIPTYLINE [Concomitant]
     Route: 065
  5. PREMPRO [Concomitant]
     Dosage: 0.625-5
     Route: 048
  6. ACYCLOVIR SODIUM [Concomitant]
     Route: 048
  7. OXYCONTIN [Concomitant]
     Route: 048

REACTIONS (1)
  - DEATH [None]
